FAERS Safety Report 25435805 (Version 1)
Quarter: 2025Q2

REPORT INFORMATION
  Report Type: Spontaneous
  Country: US (occurrence: None)
  Receive Date: 20250613
  Receipt Date: 20250613
  Transmission Date: 20250717
  Serious: No
  Sender: FDA-CTU
  Company Number: None

PATIENT
  Age: 39 Year
  Sex: Female
  Weight: 63 kg

DRUGS (2)
  1. METOCLOPRAMIDE [Suspect]
     Active Substance: METOCLOPRAMIDE
     Indication: Dehydration
     Dosage: OTHER QUANTITY : 10 TABLET(S)?FREQUENCY : EVERY 6 HOURS?
     Route: 048
  2. TORSEMIDE [Suspect]
     Active Substance: TORSEMIDE

REACTIONS (3)
  - Dehydration [None]
  - Condition aggravated [None]
  - Wrong product administered [None]

NARRATIVE: CASE EVENT DATE: 20250515
